FAERS Safety Report 11396710 (Version 2)
Quarter: 2015Q4

REPORT INFORMATION
  Report Type: Spontaneous
  Country: GB (occurrence: GB)
  Receive Date: 20150819
  Receipt Date: 20151113
  Transmission Date: 20160304
  Serious: Yes (Other)
  Sender: FDA-Public Use
  Company Number: GB-GLAXOSMITHKLINE-GB2015117809

PATIENT
  Age: 72 Year
  Sex: Female
  Weight: 55.8 kg

DRUGS (5)
  1. WATER FOR INJECTIONS [Suspect]
     Active Substance: WATER
  2. CEFUROXIME. [Suspect]
     Active Substance: CEFUROXIME
     Indication: CATARACT OPERATION
     Route: 047
     Dates: start: 20150513
  3. WATER FOR INJECTIONS [Suspect]
     Active Substance: WATER
     Indication: CATARACT OPERATION
  4. WATER FOR INJECTIONS [Suspect]
     Active Substance: WATER
     Indication: OFF LABEL USE
     Route: 047
     Dates: start: 20150513
  5. WATER FOR INJECTIONS [Suspect]
     Active Substance: WATER
     Indication: CATARACT OPERATION
     Route: 047
     Dates: start: 20150513

REACTIONS (1)
  - Corneal opacity [Unknown]
